FAERS Safety Report 10060514 (Version 2)
Quarter: 2014Q3

REPORT INFORMATION
  Report Type: Spontaneous
  Country: US (occurrence: US)
  Receive Date: 20140404
  Receipt Date: 20140818
  Transmission Date: 20150326
  Serious: Yes (Death, Hospitalization, Other)
  Sender: FDA-Public Use
  Company Number: US-009507513-1404USA003415

PATIENT
  Sex: Male
  Weight: 90.7 kg

DRUGS (1)
  1. JANUVIA [Suspect]
     Active Substance: SITAGLIPTIN PHOSPHATE
     Indication: TYPE 2 DIABETES MELLITUS
     Dosage: 100 MG, QD
     Route: 048
     Dates: start: 20090427, end: 20100504

REACTIONS (27)
  - Explorative laparotomy [Unknown]
  - Liver function test abnormal [Unknown]
  - Arteriosclerosis coronary artery [Unknown]
  - Pancreatic carcinoma [Fatal]
  - Choledochoenterostomy [Recovered/Resolved]
  - Biopsy lymph gland [Unknown]
  - Metastases to liver [Unknown]
  - Cholelithiasis [Unknown]
  - Fatigue [Unknown]
  - Radiotherapy [Unknown]
  - Hypoglycaemia [Unknown]
  - Blood albumin decreased [Unknown]
  - Haemoglobin decreased [Unknown]
  - Metastases to lung [Unknown]
  - Gastroenterostomy [Recovered/Resolved]
  - Coronary artery bypass [Unknown]
  - Pancreatic carcinoma metastatic [Fatal]
  - Pallor [Unknown]
  - Contusion [Unknown]
  - Hypoglycaemia [Unknown]
  - Metastasis [Unknown]
  - Abdominal tenderness [Unknown]
  - Insulin-requiring type 2 diabetes mellitus [Unknown]
  - Asthenia [Unknown]
  - Skin tightness [Unknown]
  - Oesophageal pain [Unknown]
  - Urine analysis abnormal [Unknown]

NARRATIVE: CASE EVENT DATE: 200906
